FAERS Safety Report 5805932-5 (Version None)
Quarter: 2008Q3

REPORT INFORMATION
  Report Type: 
  Country: None (occurrence: None)
  Receive Date: 20080710
  Receipt Date: 20080703
  Transmission Date: 20090109
  Serious: Yes (Hospitalization, Other)
  Sender: FDA-Public Use
  Company Number: BR-ASTRAZENECA-2008UW13492

PATIENT
  Age: 61 Year
  Sex: Female
  Weight: 52 kg

DRUGS (4)
  1. ARIMIDEX [Suspect]
     Indication: BREAST CANCER
     Route: 048
     Dates: start: 20040101
  2. TAMOXIFEN CITRATE [Suspect]
     Indication: BREAST CANCER
     Route: 048
     Dates: start: 20020101, end: 20040101
  3. LEXAPRO [Concomitant]
     Indication: DEPRESSION
     Dates: start: 20050101
  4. RIVOTRIL [Concomitant]
     Indication: ANXIETY
     Dates: start: 20020101

REACTIONS (5)
  - DEPRESSION [None]
  - HOT FLUSH [None]
  - LEUKOPENIA [None]
  - UTERINE DISORDER [None]
  - UTERINE ENLARGEMENT [None]
